FAERS Safety Report 5003369-2 (Version None)
Quarter: 2006Q2

REPORT INFORMATION
  Report Type: 
  Country: None (occurrence: None)
  Receive Date: 20060511
  Receipt Date: 20060504
  Transmission Date: 20061013
  Serious: Yes (Life-Threatening)
  Sender: FDA-Public Use
  Company Number: GBWYE578726APR06

PATIENT
  Sex: Female

DRUGS (4)
  1. EFFEXOR [Suspect]
     Route: 048
  2. MIRTAZAPINE [Concomitant]
  3. OLANZAPINE [Concomitant]
  4. NIMESULIDE [Concomitant]

REACTIONS (2)
  - BLOOD POTASSIUM INCREASED [None]
  - RENAL TUBULAR NECROSIS [None]
